FAERS Safety Report 9263079 (Version 1)
Quarter: 2013Q2

REPORT INFORMATION
  Report Type: Spontaneous
  Country: GB (occurrence: None)
  Receive Date: 20130425
  Receipt Date: 20130425
  Transmission Date: 20140414
  Serious: Yes (Disabling)
  Sender: FDA-Public Use
  Company Number: GB-DEXPHARM-20130161

PATIENT
  Age: 89 Year
  Sex: Female

DRUGS (1)
  1. OMEPRAZOLE [Suspect]
     Indication: GASTROOESOPHAGEAL REFLUX DISEASE
     Route: 051
     Dates: start: 20121222, end: 20130205

REACTIONS (6)
  - Vision blurred [None]
  - Fall [None]
  - Visual impairment [None]
  - Weight decreased [None]
  - Muscle disorder [None]
  - Muscular weakness [None]
